FAERS Safety Report 8227982-4 (Version None)
Quarter: 2012Q1

REPORT INFORMATION
  Report Type: 
  Country: None (occurrence: None)
  Receive Date: 20120322
  Receipt Date: 20120313
  Transmission Date: 20120608
  Serious: Yes (Other)
  Sender: FDA-Public Use
  Company Number: DE-FRI-1000029236

PATIENT
  Age: 23 Year
  Sex: Male

DRUGS (2)
  1. ROFLUMILAST [Suspect]
     Indication: CHRONIC OBSTRUCTIVE PULMONARY DISEASE
     Dosage: 500 MCG
  2. ROFLUMILAST [Suspect]
     Dosage: 250 MCG

REACTIONS (2)
  - CIRCULATORY COLLAPSE [None]
  - WRONG TECHNIQUE IN DRUG USAGE PROCESS [None]
